FAERS Safety Report 7531225 (Version 3)
Quarter: 2013Q3

REPORT INFORMATION
  Report Type: Spontaneous
  Country: US (occurrence: US)
  Receive Date: 20100806
  Receipt Date: 20130916
  Transmission Date: 20140515
  Serious: Yes (Hospitalization)
  Sender: FDA-Public Use
  Company Number: US-BAYER-201029375NA

PATIENT
  Age: 41 Year
  Sex: Female
  Weight: 114 kg

DRUGS (8)
  1. YASMIN [Suspect]
     Indication: CONTRACEPTION
     Dosage: UNK UNK, UNK
     Route: 048
     Dates: start: 2002, end: 20080715
  2. YASMIN [Suspect]
     Indication: PREMENSTRUAL SYNDROME
  3. YASMIN [Suspect]
     Indication: MENORRHAGIA
  4. SYNTHROID [Concomitant]
     Dosage: 112 UNK, UNK
  5. CIPRO [Concomitant]
  6. AMOXICILLIN [Concomitant]
     Dosage: 500 MG, UNK
     Dates: start: 20080605
  7. PROPOXYPHENE [Concomitant]
     Dosage: 100-650 MG
     Dates: start: 20080605
  8. LEVOXYL [Concomitant]
     Dosage: 111 MCG, DAILY 5 DAYS PER WEEK AND OFF FOR 2 DAYS
     Route: 048

REACTIONS (2)
  - Transient ischaemic attack [None]
  - Pain [None]
